FAERS Safety Report 22589579 (Version 1)
Quarter: 2023Q2

REPORT INFORMATION
  Report Type: Spontaneous
  Country: CY (occurrence: CY)
  Receive Date: 20230612
  Receipt Date: 20230612
  Transmission Date: 20230722
  Serious: Yes (Other)
  Sender: FDA-Public Use
  Company Number: CY-002147023-NVSC2023CY116127

PATIENT
  Age: 75 Year
  Sex: Female

DRUGS (2)
  1. LETROZOLE [Suspect]
     Active Substance: LETROZOLE
     Indication: Breast cancer metastatic
     Dosage: UNK (WITH EXCELLENT RESPONSE AND QOL)
     Route: 065
     Dates: start: 202212
  2. PALBOCICLIB [Suspect]
     Active Substance: PALBOCICLIB
     Indication: Breast cancer metastatic
     Dosage: UNK (WITH EXCELLENT RESPONSE AND QOL)
     Route: 065
     Dates: start: 202212

REACTIONS (2)
  - Metastases to bone [Unknown]
  - Metastases to peritoneum [Unknown]
